FAERS Safety Report 5397689-X (Version None)
Quarter: 2007Q3

REPORT INFORMATION
  Report Type: 
  Country: None (occurrence: None)
  Receive Date: 20070723
  Receipt Date: 20070710
  Transmission Date: 20080115
  Serious: Yes (Other)
  Sender: FDA-Public Use
  Company Number: B0479517A

PATIENT
  Sex: 0

DRUGS (1)
  1. VALACYCLOVIR [Suspect]
     Indication: HERPES ZOSTER
     Dosage: 1000 MG/THREE TIMES PER DAY/ORAL
     Route: 048

REACTIONS (12)
  - ANOREXIA [None]
  - COORDINATION ABNORMAL [None]
  - FATIGUE [None]
  - GASTRITIS [None]
  - HOT FLUSH [None]
  - PALLOR [None]
  - PANCYTOPENIA [None]
  - RASH [None]
  - RENAL DISORDER [None]
  - SOMNOLENCE [None]
  - TACHYCARDIA [None]
  - URTICARIA [None]
